FAERS Safety Report 14688694 (Version 1)
Quarter: 2018Q1

REPORT INFORMATION
  Report Type: Spontaneous
  Country: FR (occurrence: FR)
  Receive Date: 20180328
  Receipt Date: 20180328
  Transmission Date: 20180509
  Serious: Yes (Hospitalization)
  Sender: FDA-Public Use
  Company Number: FR-ROCHE-2091508

PATIENT
  Age: 29 Year
  Sex: Male

DRUGS (4)
  1. CAFFEINE. [Suspect]
     Active Substance: CAFFEINE
     Indication: DIZZINESS
     Dosage: TOOK DOZENS OF CAFFEINE TABLETS
     Route: 048
  2. DIAZEPAM. [Suspect]
     Active Substance: DIAZEPAM
     Indication: PRODUCT USED FOR UNKNOWN INDICATION
     Route: 065
  3. LANSOPRAZOLE. [Concomitant]
     Active Substance: LANSOPRAZOLE
     Route: 065
  4. PANTOPRAZOLE [Concomitant]
     Active Substance: PANTOPRAZOLE
     Route: 065

REACTIONS (12)
  - Dizziness [Unknown]
  - Hyperhidrosis [Unknown]
  - Agitation [Unknown]
  - Mydriasis [Unknown]
  - Hypokalaemia [Recovered/Resolved]
  - Drug abuse [Unknown]
  - Tremor [Unknown]
  - Intentional overdose [Unknown]
  - Sinus tachycardia [Recovered/Resolved]
  - Toxicity to various agents [Recovering/Resolving]
  - Hyperlactacidaemia [Recovered/Resolved]
  - Vomiting [Unknown]
